FAERS Safety Report 23909828 (Version 2)
Quarter: 2024Q2

REPORT INFORMATION
  Report Type: Spontaneous
  Country: JP (occurrence: JP)
  Receive Date: 20240528
  Receipt Date: 20240531
  Transmission Date: 20240716
  Serious: Yes (Other)
  Sender: FDA-Public Use
  Company Number: JP-GENMAB-2024-01434AA

PATIENT
  Age: 82 Year
  Sex: Male

DRUGS (10)
  1. EPKINLY [Suspect]
     Active Substance: EPCORITAMAB-BYSP
     Indication: Diffuse large B-cell lymphoma refractory
     Dosage: 0.16 MILLIGRAM, SINGLE, DAY1
     Route: 058
     Dates: start: 20240418, end: 20240418
  2. EPKINLY [Suspect]
     Active Substance: EPCORITAMAB-BYSP
     Dosage: 0.8 MILLIGRAM, SINGLE, DAY8
     Route: 058
     Dates: start: 20240425, end: 20240425
  3. EPKINLY [Suspect]
     Active Substance: EPCORITAMAB-BYSP
     Dosage: UNK
     Route: 058
     Dates: start: 2024
  4. DEXAMETHASONE [Concomitant]
     Active Substance: DEXAMETHASONE
     Indication: Prophylaxis
     Dosage: 15 MILLIGRAM, DAY 1, DAY 2, DAY 3 AND DAY 4 OF ADMINISTRATION OF EPKINLY SUBCUTANEOUS INJECTION (EPC
     Dates: start: 20240418
  5. DIPHENHYDRAMINE [Concomitant]
     Active Substance: DIPHENHYDRAMINE
     Indication: Prophylaxis
     Dosage: 50 MILLIGRAM, DAY 1 OF ADMINISTRATION OF EPKINLY SUBCUTANEOUS INJECTION (EPCORITAMAB) (GENETICAL REC
     Dates: start: 20240425
  6. ACETAMINOPHEN [Concomitant]
     Active Substance: ACETAMINOPHEN
     Indication: Prophylaxis
     Dosage: UNK, DAY 1 OF ADMINISTRATION OF EPKINLY SUBCUTANEOUS INJECTION (EPCORITAMAB) (GENETICAL RECOMBINATIO
     Dates: start: 20240425
  7. CYCLOPHOSPHAMIDE [Concomitant]
     Active Substance: CYCLOPHOSPHAMIDE
     Dosage: UNK, BEFORE STARTING EPKINLY SUBCUTANEOUS INJECTION (EPCORITAMAB) (GENETICAL RECOMBINATION), CEPP TH
  8. ETOPOSIDE [Concomitant]
     Active Substance: ETOPOSIDE
     Dosage: UNK, BEFORE STARTING EPKINLY SUBCUTANEOUS INJECTION (EPCORITAMAB) (GENETICAL RECOMBINATION), CEPP TH
  9. PROCARBAZINE HYDROCHLORIDE [Concomitant]
     Active Substance: PROCARBAZINE HYDROCHLORIDE
     Dosage: UNK, BEFORE STARTING EPKINLY SUBCUTANEOUS INJECTION (EPCORITAMAB) (GENETICAL RECOMBINATION), CEPP TH
  10. PREDNISOLONE [Concomitant]
     Active Substance: PREDNISOLONE
     Dosage: UNK, BEFORE STARTING EPKINLY SUBCUTANEOUS INJECTION (EPCORITAMAB) (GENETICAL RECOMBINATION), CEPP TH

REACTIONS (2)
  - Diffuse large B-cell lymphoma refractory [Unknown]
  - Cytokine release syndrome [Recovered/Resolved]

NARRATIVE: CASE EVENT DATE: 20240426
